FAERS Safety Report 9796100 (Version 2)
Quarter: 2014Q1

REPORT INFORMATION
  Report Type: Spontaneous
  Country: IT (occurrence: IT)
  Receive Date: 20140103
  Receipt Date: 20140226
  Transmission Date: 20141002
  Serious: Yes (Hospitalization)
  Sender: FDA-Public Use
  Company Number: IT-JNJFOC-20131214297

PATIENT
  Age: 14 Year
  Sex: Male
  Weight: 73 kg

DRUGS (2)
  1. SERENASE [Suspect]
     Indication: ANXIETY
     Route: 048
     Dates: start: 20130531, end: 20130601
  2. XANAX [Suspect]
     Indication: ANXIETY
     Route: 048
     Dates: start: 20130601, end: 20130601

REACTIONS (4)
  - Dysphagia [Recovered/Resolved]
  - Gait disturbance [Recovered/Resolved]
  - Tremor [Recovered/Resolved]
  - Oromandibular dystonia [Recovered/Resolved]
